FAERS Safety Report 4715955-5 (Version None)
Quarter: 2005Q3

REPORT INFORMATION
  Report Type: 
  Country: None (occurrence: None)
  Receive Date: 20050718
  Receipt Date: 20050711
  Transmission Date: 20060218
  Serious: Yes (Life-Threatening)
  Sender: FDA-Public Use
  Company Number: FR-BOEHRINGER INGELHEIM PHARMACEUTICALS, INC.-2005-FF-00502FF

PATIENT
  Sex: Male
  Weight: 3.59 kg

DRUGS (4)
  1. CATAPRES [Suspect]
     Indication: HYPERTENSION
     Route: 015
     Dates: end: 20031105
  2. LAROXYL [Concomitant]
     Indication: DEPRESSION
     Route: 015
     Dates: end: 20031103
  3. STILNOX [Concomitant]
     Route: 015
     Dates: end: 20031103
  4. ACETAMINOPHEN [Concomitant]
     Route: 015
     Dates: end: 20031105

REACTIONS (12)
  - CAESAREAN SECTION [None]
  - HYPOGLYCAEMIA NEONATAL [None]
  - HYPOTONIA [None]
  - HYPOTONIA NEONATAL [None]
  - JAUNDICE NEONATAL [None]
  - MACROSOMIA [None]
  - NEONATAL RESPIRATORY DISTRESS SYNDROME [None]
  - PREMATURE BABY [None]
  - PREMATURE LABOUR [None]
  - RESPIRATORY DISTRESS [None]
  - SOMNOLENCE [None]
  - SOMNOLENCE NEONATAL [None]
